FAERS Safety Report 21070287 (Version 2)
Quarter: 2022Q3

REPORT INFORMATION
  Report Type: Report from Study
  Country: BE (occurrence: BE)
  Receive Date: 20220712
  Receipt Date: 20220713
  Transmission Date: 20221027
  Serious: Yes (Death, Other)
  Sender: FDA-Public Use
  Company Number: BE-BRISTOL-MYERS SQUIBB COMPANY-2022-069105

PATIENT
  Sex: Female

DRUGS (4)
  1. NIVOLUMAB [Suspect]
     Active Substance: NIVOLUMAB
     Indication: Malignant melanoma
     Route: 065
  2. CLINDAMYCIN [Concomitant]
     Active Substance: CLINDAMYCIN
     Dosage: 3X900
     Route: 065
  3. PIPERACILLIN SODIUM\TAZOBACTAM SODIUM [Concomitant]
     Active Substance: PIPERACILLIN SODIUM\TAZOBACTAM SODIUM
     Route: 065
  4. KONAKION [Concomitant]
     Active Substance: PHYTONADIONE
     Route: 065

REACTIONS (7)
  - Hepatitis cholestatic [Fatal]
  - Hepatic encephalopathy [Unknown]
  - Asterixis [Unknown]
  - Hyperbilirubinaemia [Unknown]
  - Diverticulitis [Unknown]
  - Hepatorenal failure [Unknown]
  - Confusional state [Unknown]

NARRATIVE: CASE EVENT DATE: 20220703
